FAERS Safety Report 24133772 (Version 1)
Quarter: 2024Q3

REPORT INFORMATION
  Report Type: Spontaneous
  Country: US (occurrence: US)
  Receive Date: 20240724
  Receipt Date: 20240724
  Transmission Date: 20241016
  Serious: No
  Sender: MYLAN
  Company Number: US-MYLANLABS-2024M1065440

PATIENT
  Sex: Female
  Weight: 64.86 kg

DRUGS (1)
  1. ESTRADIOL TRANSDERMAL SYSTEM [Suspect]
     Active Substance: ESTRADIOL
     Indication: Menopause
     Dosage: 0.075 MILLIGRAM, QD (ONCE A WEEK)
     Route: 062

REACTIONS (3)
  - Skin burning sensation [Unknown]
  - Rash [Unknown]
  - Product adhesion issue [Unknown]
